FAERS Safety Report 8787061 (Version 2)
Quarter: 2015Q2

REPORT INFORMATION
  Report Type: Report from Study
  Country: US (occurrence: US)
  Receive Date: 20120914
  Receipt Date: 20150623
  Transmission Date: 20150821
  Serious: Yes (Death)
  Sender: FDA-Public Use
  Company Number: US-ROCHE-1128019

PATIENT
  Sex: Male
  Weight: 81 kg

DRUGS (9)
  1. PERCOCET [Concomitant]
     Active Substance: ACETAMINOPHEN\OXYCODONE HYDROCHLORIDE
  2. IRINOTECAN [Concomitant]
     Active Substance: IRINOTECAN
     Route: 065
  3. AVASTIN [Suspect]
     Active Substance: BEVACIZUMAB
     Indication: PANCREATIC CARCINOMA
     Route: 042
     Dates: start: 20060626
  4. XELODA [Suspect]
     Active Substance: CAPECITABINE
     Indication: PANCREATIC CARCINOMA
     Route: 065
  5. GEMZAR [Concomitant]
     Active Substance: GEMCITABINE HYDROCHLORIDE
     Route: 065
  6. PROCRIT [Concomitant]
     Active Substance: ERYTHROPOIETIN
     Dosage: 40 K
     Route: 065
  7. OXALIPLATIN. [Suspect]
     Active Substance: OXALIPLATIN
     Indication: PRODUCT USED FOR UNKNOWN INDICATION
     Route: 065
  8. NEULASTA [Concomitant]
     Active Substance: PEGFILGRASTIM
     Route: 065
  9. PANCREASE (UNITED STATES) [Concomitant]

REACTIONS (11)
  - Death [Fatal]
  - Pyuria [Unknown]
  - Dyspnoea [Unknown]
  - Diarrhoea [Unknown]
  - Colitis [Unknown]
  - Enteritis [Unknown]
  - Metastatic neoplasm [Unknown]
  - Chest discomfort [Unknown]
  - Off label use [Unknown]
  - Abdominal pain [Unknown]
  - Ischaemia [Unknown]
